FAERS Safety Report 13050047 (Version 2)
Quarter: 2017Q1

REPORT INFORMATION
  Report Type: Spontaneous
  Country: US (occurrence: US)
  Receive Date: 20161221
  Receipt Date: 20170109
  Transmission Date: 20170428
  Serious: Yes (Hospitalization)
  Sender: FDA-Public Use
  Company Number: US-UNITED THERAPEUTICS-UNT-2016-019092

PATIENT
  Age: 1 Year
  Sex: Male
  Weight: 9.98 kg

DRUGS (2)
  1. REMODULIN [Suspect]
     Active Substance: TREPROSTINIL
     Indication: PULMONARY HYPERTENSION
     Dosage: 0.04025 ?G/KG, CONTINUING
     Route: 058
     Dates: start: 20160427
  2. REVATIO [Concomitant]
     Active Substance: SILDENAFIL CITRATE
     Indication: PRODUCT USED FOR UNKNOWN INDICATION

REACTIONS (3)
  - Pyrexia [Unknown]
  - Pneumonia [Unknown]
  - Rash erythematous [Unknown]

NARRATIVE: CASE EVENT DATE: 201612
